FAERS Safety Report 8461378-5 (Version None)
Quarter: 2012Q2

REPORT INFORMATION
  Report Type: 
  Country: None (occurrence: None)
  Receive Date: 20120619
  Receipt Date: 20120619
  Transmission Date: 20120825
  Serious: Yes (Other)
  Sender: FDA-Public Use
  Company Number: None

PATIENT
  Age: 79 Year
  Sex: Male
  Weight: 74.8435 kg

DRUGS (9)
  1. CLONIDINE [Suspect]
     Indication: HYPERTENSION
     Dosage: 0.1 WEEKLY SHOULDER
     Dates: start: 20120513, end: 20120527
  2. TRAVANTAN [Concomitant]
  3. XANAX [Concomitant]
  4. HYDROCHLOROTHIAZIDE [Concomitant]
  5. LISINIPRIL [Concomitant]
  6. BETOPTIC S [Concomitant]
  7. ASPIRIN [Concomitant]
  8. AMLODIPINE [Concomitant]
  9. FLECANAIDE [Concomitant]

REACTIONS (6)
  - ARRHYTHMIA [None]
  - SOMNOLENCE [None]
  - PRODUCT SUBSTITUTION ISSUE [None]
  - FATIGUE [None]
  - CHEST PAIN [None]
  - FEELING ABNORMAL [None]
